FAERS Safety Report 7701399-0 (Version None)
Quarter: 2011Q3

REPORT INFORMATION
  Report Type: 
  Country: None (occurrence: None)
  Receive Date: 20110822
  Receipt Date: 20110819
  Transmission Date: 20111222
  Serious: No
  Sender: FDA-Public Use
  Company Number: US-PFIZER INC-2011192398

PATIENT
  Sex: Female
  Weight: 45.351 kg

DRUGS (7)
  1. ALAVERT [Suspect]
     Indication: RHINORRHOEA
  2. LIPITOR [Concomitant]
     Dosage: UNK
  3. ALAVERT [Suspect]
     Indication: NASAL DISCOMFORT
  4. ACETYLSALICYLIC ACID [Concomitant]
     Dosage: UNK
  5. ALAVERT [Suspect]
     Indication: SNEEZING
     Dosage: 10 MG, 1X/DAY
     Route: 048
     Dates: start: 20110814, end: 20110818
  6. FISH OIL [Concomitant]
     Dosage: UNK
  7. MULTI-VITAMINS [Concomitant]
     Dosage: UNK

REACTIONS (1)
  - EPISTAXIS [None]
